FAERS Safety Report 7338252-0 (Version None)
Quarter: 2011Q1

REPORT INFORMATION
  Report Type: 
  Country: None (occurrence: None)
  Receive Date: 20110308
  Receipt Date: 20110223
  Transmission Date: 20110831
  Serious: Yes (Hospitalization, Other)
  Sender: FDA-Public Use
  Company Number: FR-ELI_LILLY_AND_COMPANY-FR201103001271

PATIENT
  Sex: Female

DRUGS (4)
  1. CYMBALTA [Suspect]
     Indication: DEPRESSION
     Dosage: UNK, DAILY (1/D)
     Route: 048
     Dates: start: 20080101, end: 20100410
  2. LEPTICUR [Concomitant]
     Dosage: 10 MG, UNK
  3. NEULEPTIL [Concomitant]
     Dosage: 40 GTT, DAILY (1/D)
  4. XANAX [Concomitant]
     Dosage: 0.5 MG, EVERY 8 HRS

REACTIONS (4)
  - INAPPROPRIATE ANTIDIURETIC HORMONE SECRETION [None]
  - STATUS EPILEPTICUS [None]
  - BLOOD LACTIC ACID INCREASED [None]
  - WATER INTOXICATION [None]
